FAERS Safety Report 9917941 (Version 1)
Quarter: 2014Q1

REPORT INFORMATION
  Report Type: Report from Study
  Country: US (occurrence: US)
  Receive Date: 20140222
  Receipt Date: 20140222
  Transmission Date: 20141002
  Serious: Yes (Hospitalization)
  Sender: FDA-Public Use
  Company Number: US-ROCHE-1353725

PATIENT
  Age: 52 Year
  Sex: Female

DRUGS (12)
  1. LUCENTIS [Suspect]
     Indication: PRODUCT USED FOR UNKNOWN INDICATION
     Route: 050
     Dates: start: 201310
  2. NOVOLOG [Concomitant]
     Indication: DIABETES MELLITUS
  3. CALCIUM ACETATE [Concomitant]
     Route: 065
  4. RENVELA [Concomitant]
     Indication: BLOOD PHOSPHORUS
  5. RAMIPRIL [Concomitant]
     Indication: BLOOD PRESSURE
     Route: 065
  6. SIMVASTATIN [Concomitant]
     Indication: BLOOD CHOLESTEROL
     Route: 065
  7. CARVEDILOL [Concomitant]
     Indication: BLOOD PRESSURE
     Route: 065
  8. GLIPIZIDE [Concomitant]
     Indication: DIABETES MELLITUS
     Route: 065
  9. GABAPENTIN [Concomitant]
     Route: 065
  10. AMLODIPINE BESYLATE [Concomitant]
     Indication: BLOOD PRESSURE
     Route: 065
  11. PLAVIX [Concomitant]
     Route: 065
  12. ASPIRIN [Concomitant]
     Route: 065

REACTIONS (1)
  - Abscess limb [Recovered/Resolved]
